FAERS Safety Report 6669042-X (Version None)
Quarter: 2010Q2

REPORT INFORMATION
  Report Type: 
  Country: None (occurrence: None)
  Receive Date: 20100402
  Receipt Date: 20100319
  Transmission Date: 20101027
  Serious: Yes (Other)
  Sender: FDA-Public Use
  Company Number: IDA-00344

PATIENT
  Sex: Female

DRUGS (1)
  1. PROPRANOLOL [Suspect]
     Indication: HAEMANGIOMA
     Dosage: 1 MG/KG ; 2 MG/KG ORAL
     Route: 048

REACTIONS (3)
  - HYPERKALAEMIA [None]
  - NEONATAL HYPOTENSION [None]
  - OFF LABEL USE [None]
